FAERS Safety Report 19487138 (Version 2)
Quarter: 2021Q3

REPORT INFORMATION
  Report Type: Spontaneous
  Country: CN (occurrence: CN)
  Receive Date: 20210702
  Receipt Date: 20210712
  Transmission Date: 20211014
  Serious: Yes (Hospitalization, Other)
  Sender: FDA-Public Use
  Company Number: CN-BAYER-2021-168947

PATIENT
  Age: 57 Year
  Sex: Male
  Weight: 84 kg

DRUGS (1)
  1. STIVARGA [Suspect]
     Active Substance: REGORAFENIB
     Indication: HEPATIC CANCER
     Dosage: 120 MG, QD
     Route: 048
     Dates: start: 20210511, end: 20210601

REACTIONS (2)
  - Myelosuppression [Recovering/Resolving]
  - Off label use [None]

NARRATIVE: CASE EVENT DATE: 20210511
